FAERS Safety Report 9126270 (Version 1)
Quarter: 2013Q1

REPORT INFORMATION
  Report Type: Spontaneous
  Country: US (occurrence: US)
  Receive Date: 20130121
  Receipt Date: 20130121
  Transmission Date: 20140127
  Serious: Yes (Other)
  Sender: FDA-Public Use
  Company Number: PHEH2013US001514

PATIENT
  Sex: Female

DRUGS (11)
  1. MIACALCIN [Suspect]
     Dosage: UNK UKN, UNK
  2. CALCITONIN SALMON [Suspect]
     Dosage: UNK UKN, UNK
  3. AMLODIPINE [Concomitant]
     Dosage: UNK UKN, UNK
  4. VESICARE [Concomitant]
     Dosage: UNK UKN, UNK
  5. PATADAY [Concomitant]
     Dosage: UNK UKN, UNK
  6. TENORMIN [Concomitant]
     Dosage: UNK UKN, UNK
  7. THYROXINE [Concomitant]
     Dosage: UNK UKN, UNK
  8. ATENOLOL [Concomitant]
     Dosage: UNK UKN, UNK
  9. PANTOPRAZOLE [Concomitant]
     Dosage: UNK UKN, UNK
  10. VITAMIN D [Concomitant]
     Dosage: UNK UKN, UNK
  11. CLOPIDOGREL BISULFATE [Concomitant]
     Dosage: UNK UKN, UNK

REACTIONS (6)
  - Coeliac disease [Unknown]
  - Cow^s milk intolerance [Unknown]
  - Rhinorrhoea [Unknown]
  - Dyspepsia [Unknown]
  - Dysphagia [Unknown]
  - Choking [Unknown]
